FAERS Safety Report 4580686-1 (Version None)
Quarter: 2005Q1

REPORT INFORMATION
  Report Type: 
  Country: None (occurrence: None)
  Receive Date: 20050214
  Receipt Date: 20040512
  Transmission Date: 20050727
  Serious: No
  Sender: FDA-Public Use
  Company Number: US-GLAXOSMITHKLINE-A0510553A

PATIENT
  Sex: Female

DRUGS (4)
  1. LAMICTAL [Suspect]
     Dosage: 25MG PER DAY
     Route: 048
     Dates: end: 20040511
  2. SERZONE [Concomitant]
  3. WELLBUTRIN [Concomitant]
  4. CLONAZEPAM [Concomitant]

REACTIONS (7)
  - FEELING HOT [None]
  - HEADACHE [None]
  - HYPERAESTHESIA [None]
  - PAIN [None]
  - PYREXIA [None]
  - RASH PRURITIC [None]
  - SWELLING FACE [None]
